FAERS Safety Report 7440952-9 (Version None)
Quarter: 2011Q2

REPORT INFORMATION
  Report Type: 
  Country: None (occurrence: None)
  Receive Date: 20110427
  Receipt Date: 20110418
  Transmission Date: 20111010
  Serious: Yes (Other)
  Sender: FDA-Public Use
  Company Number: US-ASTRAZENECA-2010SE10892

PATIENT
  Age: 55 Year
  Sex: Female

DRUGS (23)
  1. CRESTOR [Suspect]
     Route: 048
  2. PROGRAF [Concomitant]
     Dosage: 3 MG IN AM AND 2 MG AT BEDTIME
  3. PROTONIX [Concomitant]
  4. NEURONTIN [Concomitant]
  5. MULTI-VITAMIN [Concomitant]
  6. CLARITIN [Concomitant]
  7. COLACE [Concomitant]
  8. FRAGMIN [Concomitant]
  9. DEPAKOTE [Concomitant]
  10. SEROQUEL [Suspect]
     Indication: BIPOLAR I DISORDER
     Route: 048
  11. ASPIRIN [Concomitant]
  12. VITAMIN D [Concomitant]
  13. CLONAZEPAM [Concomitant]
  14. ROXICET [Concomitant]
     Dosage: 5 MG/325 MG AS NEEDED
  15. ACETAMINOPHEN [Concomitant]
     Dosage: AS NEEDED
  16. TOPROL-XL [Suspect]
     Route: 048
  17. HYDROCHLOROTHIAZIDE [Concomitant]
  18. OMEGA FISH OIL [Concomitant]
  19. MAGNESIUM OXIDE [Concomitant]
  20. MYFORTIC [Concomitant]
     Dosage: 720 MG IN AM AND 360 MG AT BEDTIME
  21. SYNTHROID [Concomitant]
  22. RISPERDAL [Concomitant]
  23. DEPAKOTE [Concomitant]

REACTIONS (13)
  - PSYCHOTIC DISORDER [None]
  - MYOCARDIAL INFARCTION [None]
  - RENAL FAILURE CHRONIC [None]
  - DELUSION [None]
  - LARYNGITIS [None]
  - CARDIAC TAMPONADE [None]
  - HYPERCOAGULATION [None]
  - MANIA [None]
  - CEREBROVASCULAR ACCIDENT [None]
  - ASTHMA [None]
  - RENAL TRANSPLANT [None]
  - DRUG DOSE OMISSION [None]
  - HYPOTHYROIDISM [None]
